FAERS Safety Report 11195913 (Version 3)
Quarter: 2015Q3

REPORT INFORMATION
  Report Type: Spontaneous
  Country: US (occurrence: US)
  Receive Date: 20150617
  Receipt Date: 20150701
  Transmission Date: 20151125
  Serious: No
  Sender: FDA-Public Use
  Company Number: US-BRISTOL-MYERS SQUIBB COMPANY-BMS-2015-036307

PATIENT
  Sex: Female

DRUGS (1)
  1. ELIQUIS [Suspect]
     Active Substance: APIXABAN
     Indication: PRODUCT USE ISSUE
     Dosage: 5 MG, UNK
     Route: 065

REACTIONS (6)
  - Dizziness [Unknown]
  - Malaise [Unknown]
  - Hypoaesthesia [Unknown]
  - Off label use [Unknown]
  - Drug ineffective [Unknown]
  - Wrong technique in product usage process [Unknown]
